FAERS Safety Report 14817545 (Version 3)
Quarter: 2018Q4

REPORT INFORMATION
  Report Type: Spontaneous
  Country: JP (occurrence: JP)
  Receive Date: 20180426
  Receipt Date: 20181011
  Transmission Date: 20190204
  Serious: Yes (Hospitalization)
  Sender: FDA-Public Use
  Company Number: JP-AMGEN-JPNSP2018056008

PATIENT
  Age: 65 Year
  Sex: Male
  Weight: 65 kg

DRUGS (8)
  1. FENTOS [Concomitant]
     Active Substance: FENTANYL
     Indication: BONE GIANT CELL TUMOUR
     Dosage: 8 MG, QD
     Route: 050
     Dates: start: 20140213, end: 20170708
  2. ABSTRAL [Concomitant]
     Active Substance: FENTANYL CITRATE
     Indication: BONE GIANT CELL TUMOUR
     Dosage: UNK, QD
     Route: 048
     Dates: start: 20140213, end: 20170515
  3. AIMIX [Concomitant]
     Active Substance: AMLODIPINE BESYLATE\IRBESARTAN
     Indication: HYPERTENSION
     Dosage: UNK, QD
     Route: 048
     Dates: start: 20150620
  4. ZOLEDRONIC ACID [Suspect]
     Active Substance: ZOLEDRONIC ACID
     Indication: PRODUCT USED FOR UNKNOWN INDICATION
     Dosage: UNK
     Route: 041
     Dates: start: 200702, end: 201702
  5. EDIROL [Concomitant]
     Active Substance: ELDECALCITOL
     Indication: OSTEOPOROSIS
     Dosage: UNK, QD
     Route: 048
     Dates: start: 20170308, end: 20170913
  6. CYMBALTA [Concomitant]
     Active Substance: DULOXETINE HYDROCHLORIDE
     Dosage: 40 MG, QD
     Route: 048
     Dates: start: 20170419, end: 20171108
  7. RANMARK [Suspect]
     Active Substance: DENOSUMAB
     Indication: BONE GIANT CELL TUMOUR
     Dosage: 120 MG, Q4WK
     Route: 058
     Dates: start: 20170304, end: 20170501
  8. LANSOPRAZOLE. [Concomitant]
     Active Substance: LANSOPRAZOLE
     Indication: GASTROOESOPHAGEAL REFLUX DISEASE
     Dosage: 30 MG, QD
     Route: 048
     Dates: start: 20130812

REACTIONS (1)
  - Ulna fracture [Recovering/Resolving]

NARRATIVE: CASE EVENT DATE: 20170516
